FAERS Safety Report 9694484 (Version 2)
Quarter: 2014Q4

REPORT INFORMATION
  Report Type: Spontaneous
  Country: AU (occurrence: AU)
  Receive Date: 20131118
  Receipt Date: 20141002
  Transmission Date: 20150529
  Serious: Yes (Other)
  Sender: FDA-Public Use
  Company Number: AU-ABBVIE-13P-008-1157637-00

PATIENT
  Age: 37 Year
  Sex: Female

DRUGS (2)
  1. EPILIM [Suspect]
     Active Substance: VALPROATE SODIUM
     Indication: PRODUCT USED FOR UNKNOWN INDICATION
     Dosage: DAILY
     Dates: start: 19880101, end: 19880928
  2. PREDNISONE. [Suspect]
     Active Substance: PREDNISONE
     Indication: PRODUCT USED FOR UNKNOWN INDICATION
     Dosage: EVERY OTHER DAY
     Dates: start: 19860101

REACTIONS (1)
  - Hyperbilirubinaemia [Not Recovered/Not Resolved]
